FAERS Safety Report 18546562 (Version 1)
Quarter: 2020Q4

REPORT INFORMATION
  Report Type: Spontaneous
  Country: KR (occurrence: KR)
  Receive Date: 20201125
  Receipt Date: 20201125
  Transmission Date: 20210114
  Serious: Yes (Death, Other)
  Sender: FDA-Public Use
  Company Number: KR-GILEAD-2020-0505933

PATIENT
  Sex: Female

DRUGS (44)
  1. DEXAMETHASONE. [Concomitant]
     Active Substance: DEXAMETHASONE
     Dosage: UNK
     Dates: start: 20201116, end: 20201121
  2. ALDACTONE [Concomitant]
     Active Substance: SPIRONOLACTONE
     Dosage: UNK
     Dates: start: 20201116, end: 20201121
  3. NORMAL SALINE [Concomitant]
     Active Substance: SODIUM CHLORIDE
     Dosage: UNK
     Dates: start: 20201117, end: 20201122
  4. NORMIX [Concomitant]
     Active Substance: RIFAXIMIN
     Dosage: UNK
     Dates: start: 20201121, end: 20201121
  5. VEKLURY [Suspect]
     Active Substance: REMDESIVIR
     Indication: COVID-19
     Dosage: 100 MG
     Route: 042
     Dates: start: 20201116, end: 20201120
  6. LASIX [Concomitant]
     Active Substance: FUROSEMIDE
     Dosage: UNK
     Dates: start: 20201116, end: 20201119
  7. FURIX [CEFUROXIME] [Concomitant]
     Active Substance: CEFUROXIME
     Dosage: UNK
     Dates: start: 20201116, end: 20201121
  8. NORPIN [BUPRENORPHINE HYDROCHLORIDE] [Concomitant]
     Dosage: UNK
     Dates: start: 20201122, end: 20201122
  9. DEXTROSE 50% [Concomitant]
     Active Substance: DEXTROSE
     Dosage: UNK
     Dates: start: 20201122, end: 20201122
  10. AMARYL [Concomitant]
     Active Substance: GLIMEPIRIDE
     Dosage: UNK
     Dates: start: 20201112, end: 20201121
  11. ALBUMIN [Concomitant]
     Active Substance: ALBUMIN HUMAN
     Dosage: UNK
     Dates: start: 20201116, end: 20201122
  12. DUPHALAC [Concomitant]
     Active Substance: LACTULOSE
     Dosage: UNK
     Dates: start: 20201121, end: 20201121
  13. PENIRAMIN [Concomitant]
     Dosage: UNK
     Dates: start: 20201121, end: 20201122
  14. PLATELETS [Concomitant]
     Active Substance: HUMAN PLATELET, ALLOGENIC
     Dosage: UNK
     Dates: start: 20201121, end: 20201122
  15. TABAXIN [Concomitant]
     Active Substance: PIPERACILLIN SODIUM\TAZOBACTAM SODIUM
     Dosage: UNK
     Dates: start: 20201121, end: 20201122
  16. AMMONIA. [Concomitant]
     Active Substance: AMMONIA
     Dosage: UNK
     Dates: start: 20201122, end: 20201122
  17. TRIDOL [Concomitant]
     Active Substance: TRAMADOL HYDROCHLORIDE
     Dosage: UNK
     Dates: start: 20201116
  18. GLYPRESSIN [Concomitant]
     Active Substance: TERLIPRESSIN
     Dosage: UNK
     Dates: start: 20201122, end: 20201122
  19. BEECOM [Concomitant]
     Dosage: UNK
     Dates: start: 20201112, end: 20201121
  20. NOLTEC [Concomitant]
     Dosage: UNK
     Dates: start: 20201112, end: 20201121
  21. ZEMIGLO [Concomitant]
     Dosage: UNK
     Dates: start: 20201112, end: 20201121
  22. TACENOL [Concomitant]
     Dosage: UNK
     Dates: start: 20201115, end: 20201116
  23. DEXTROSE 5% [Concomitant]
     Active Substance: DEXTROSE
     Dosage: UNK
     Dates: start: 20201118, end: 20201122
  24. DEXTROSE 10% [Concomitant]
     Active Substance: DEXTROSE
     Dosage: UNK
     Dates: start: 20201121, end: 20201121
  25. HEPARIN [Concomitant]
     Active Substance: HEPARIN SODIUM
     Dosage: UNK
     Dates: start: 20201122, end: 20201122
  26. VASOPRESSIN. [Concomitant]
     Active Substance: VASOPRESSIN
     Dosage: UNK
     Dates: start: 20201122, end: 20201122
  27. GLIPTIDE [Concomitant]
     Dosage: UNK
     Dates: start: 20201112, end: 20201121
  28. PHAZYME [AMYLASE;LIPASE;PROTEASE NOS;SIMETICONE] [Concomitant]
     Dosage: UNK
     Dates: start: 20201113, end: 20201121
  29. PARACAY [Concomitant]
     Dosage: UNK
     Dates: start: 20201114, end: 20201114
  30. PHOSTEN [Concomitant]
     Dosage: UNK
     Dates: start: 20201118, end: 20201118
  31. SODIUM BICARBONATE. [Concomitant]
     Active Substance: SODIUM BICARBONATE
     Dosage: UNK
     Dates: start: 20201121, end: 20201122
  32. MENATAN [Concomitant]
     Dosage: UNK
     Dates: start: 20201122, end: 20201122
  33. MULTIBIC [Concomitant]
     Active Substance: CALCIUM CHLORIDE\DEXTROSE\MAGNESIUM CHLORIDE\SODIUM BICARBONATE\SODIUM CHLORIDE
     Dosage: UNK
     Dates: start: 20201122, end: 20201122
  34. NOVORAPID [Concomitant]
     Active Substance: INSULIN ASPART
     Dosage: UNK
     Dates: start: 20201112, end: 20201120
  35. DEXID [Concomitant]
     Dosage: UNK
     Dates: start: 20201112, end: 20201121
  36. DIABEX [Concomitant]
     Active Substance: METFORMIN HYDROCHLORIDE
     Dosage: UNK
     Dates: start: 20201113, end: 20201121
  37. TRESIBA [Concomitant]
     Active Substance: INSULIN DEGLUDEC
     Dosage: UNK
     Dates: start: 20201118, end: 20201120
  38. TAPOCIN [Concomitant]
     Dosage: UNK
     Dates: start: 20201121, end: 20201122
  39. CELLPENEM [Concomitant]
     Dosage: UNK
     Dates: start: 20201122, end: 20201122
  40. URSA [Concomitant]
     Active Substance: URSODIOL
     Dosage: UNK
     Dates: start: 20201112, end: 20201121
  41. INDENOL [Concomitant]
     Active Substance: PROPRANOLOL HYDROCHLORIDE
     Dosage: UNK
     Dates: start: 20201112, end: 20201121
  42. ATACAND [Concomitant]
     Active Substance: CANDESARTAN CILEXETIL
     Dosage: UNK
     Dates: start: 20201116, end: 20201121
  43. CORTISOLU [Concomitant]
     Active Substance: HYDROCORTISONE SODIUM SUCCINATE
     Dosage: UNK
     Dates: start: 20201121, end: 20201122
  44. PLASMA [Concomitant]
     Active Substance: HUMAN PLASMA
     Dosage: UNK
     Dates: start: 20201122, end: 20201122

REACTIONS (1)
  - Septic shock [Fatal]
